FAERS Safety Report 25206387 (Version 2)
Quarter: 2025Q2

REPORT INFORMATION
  Report Type: Spontaneous
  Country: GB (occurrence: GB)
  Receive Date: 20250417
  Receipt Date: 20250428
  Transmission Date: 20250717
  Serious: Yes (Death, Life-Threatening, Hospitalization, Other)
  Sender: DAIICHI
  Company Number: GB-DAIICHI SANKYO, INC.-DS-2025-135844-GB

PATIENT
  Sex: Female

DRUGS (2)
  1. ENHERTU [Suspect]
     Active Substance: FAM-TRASTUZUMAB DERUXTECAN-NXKI
     Indication: Product used for unknown indication
     Route: 065
  2. ENHERTU [Suspect]
     Active Substance: FAM-TRASTUZUMAB DERUXTECAN-NXKI
     Route: 065
     Dates: start: 20250319, end: 20250319

REACTIONS (7)
  - Interstitial lung disease [Fatal]
  - Pneumothorax [Recovering/Resolving]
  - Pneumopericardium [Recovering/Resolving]
  - Pneumocystis jirovecii pneumonia [Unknown]
  - Blood beta-D-glucan increased [Unknown]
  - Fungal infection [Unknown]
  - Nasopharyngitis [Recovering/Resolving]
